FAERS Safety Report 18089660 (Version 11)
Quarter: 2023Q4

REPORT INFORMATION
  Report Type: Spontaneous
  Country: US (occurrence: US)
  Receive Date: 20200730
  Receipt Date: 20231017
  Transmission Date: 20240110
  Serious: Yes (Other)
  Sender: FDA-Public Use
  Company Number: US-PFIZER INC-2020287520

PATIENT
  Age: 87 Year
  Sex: Male
  Weight: 84.37 kg

DRUGS (4)
  1. VYNDAMAX [Suspect]
     Active Substance: TAFAMIDIS
     Indication: Cardiac disorder
     Dosage: ONCE DAILY
     Dates: start: 202007
  2. VYNDAMAX [Suspect]
     Active Substance: TAFAMIDIS
     Indication: Amyloidosis
     Dosage: IN THE MORNING BEFORE HIS OTHER MEDICATIONS/HE SWITCHED TO TAKING IT IN THE EVENING
     Route: 048
     Dates: start: 202008
  3. VYNDAMAX [Suspect]
     Active Substance: TAFAMIDIS
     Indication: Acquired ATTR amyloidosis
     Dosage: UNK
     Dates: start: 2021
  4. VYNDAMAX [Suspect]
     Active Substance: TAFAMIDIS
     Dosage: 61 MG CAPSULE A DAY BY MOUTH
     Route: 048
     Dates: start: 20220110

REACTIONS (10)
  - Atrial fibrillation [Unknown]
  - Dementia Alzheimer^s type [Unknown]
  - Hip arthroplasty [Unknown]
  - Arthritis [Unknown]
  - Fatigue [Unknown]
  - Asthenia [Recovered/Resolved]
  - Lethargy [Recovered/Resolved]
  - Anxiety [Recovering/Resolving]
  - Asthenia [Unknown]
  - Mobility decreased [Unknown]

NARRATIVE: CASE EVENT DATE: 20200701
